FAERS Safety Report 6276115-2 (Version None)
Quarter: 2009Q3

REPORT INFORMATION
  Report Type: 
  Country: None (occurrence: None)
  Receive Date: 20090717
  Receipt Date: 20090717
  Transmission Date: 20100115
  Serious: Yes (Life-Threatening, Hospitalization)
  Sender: FDA-Public Use
  Company Number: None

PATIENT
  Sex: Female
  Weight: 77.1115 kg

DRUGS (2)
  1. LISINOPRIL AND HYDROCHLOROTHIAZIDE [Suspect]
     Indication: HYPERTENSION
     Dosage: 20 MG 2 TABLETS DAILY MOUTH
     Route: 048
     Dates: start: 20071001, end: 20090525
  2. . [Concomitant]

REACTIONS (6)
  - ANGIOEDEMA [None]
  - APHASIA [None]
  - COGNITIVE DISORDER [None]
  - COMA [None]
  - GAIT DISTURBANCE [None]
  - HEADACHE [None]
